FAERS Safety Report 20146688 (Version 1)
Quarter: 2021Q4

REPORT INFORMATION
  Report Type: Other
  Country: None (occurrence: CA)
  Receive Date: 20211203
  Receipt Date: 20211203
  Transmission Date: 20220304
  Serious: No
  Sender: FDA-Public Use
  Company Number: CA-Air Products and Chemicals, Inc. -2122662

PATIENT
  Age: 35 Year
  Sex: Male

DRUGS (1)
  1. OXYGEN [Suspect]
     Active Substance: OXYGEN

REACTIONS (2)
  - Hereditary optic atrophy [None]
  - Blindness [None]
